FAERS Safety Report 4449544-7 (Version None)
Quarter: 2004Q3

REPORT INFORMATION
  Report Type: 
  Country: None (occurrence: None)
  Receive Date: 20040909
  Receipt Date: 20040820
  Transmission Date: 20050211
  Serious: Yes (Hospitalization, Other)
  Sender: FDA-Public Use
  Company Number: USA040567736

PATIENT
  Age: 72 Year
  Sex: Female

DRUGS (10)
  1. EVISTA [Suspect]
     Indication: OSTEOPOROSIS
     Dosage: 60 MG DAY
     Dates: start: 19950101, end: 20040516
  2. MIACALCIN [Concomitant]
  3. ZOLOFT [Concomitant]
  4. VIOXX [Concomitant]
  5. CORTICOSTEROID NOS [Concomitant]
  6. OXYCODONE HCL [Concomitant]
  7. VICODIN [Concomitant]
  8. TAMOXIFEN CITRATE [Concomitant]
  9. SODIUM DIATRIZOATE [Concomitant]
  10. CALCIUM CARBONATE [Concomitant]

REACTIONS (13)
  - ABDOMINAL DISTENSION [None]
  - BONE DISORDER [None]
  - CONDITION AGGRAVATED [None]
  - METASTASES TO BONE [None]
  - MOBILITY DECREASED [None]
  - NEUROLOGICAL SYMPTOM [None]
  - OEDEMA PERIPHERAL [None]
  - PATHOLOGICAL FRACTURE [None]
  - POST PROCEDURAL COMPLICATION [None]
  - SPINAL COLUMN STENOSIS [None]
  - SPINAL COMPRESSION FRACTURE [None]
  - SPINAL DISORDER [None]
  - THROMBOSIS [None]
